FAERS Safety Report 18241189 (Version 1)
Quarter: 2020Q3

REPORT INFORMATION
  Report Type: Spontaneous
  Country: US (occurrence: US)
  Receive Date: 20200906
  Receipt Date: 20200906
  Transmission Date: 20201103
  Serious: Yes (Death)
  Sender: FDA-Public Use
  Company Number: None

PATIENT
  Age: 54 Year
  Sex: Female
  Weight: 81 kg

DRUGS (8)
  1. IRON [Concomitant]
     Active Substance: IRON
  2. CLINDAMYCIN HCL 300 MG CAPSULE MFG: RANBAXY [Suspect]
     Active Substance: CLINDAMYCIN HYDROCHLORIDE
     Indication: WOUND INFECTION
     Dosage: ?          QUANTITY:30 CAPSULE(S);?
     Route: 048
  3. VITAMIN C [Concomitant]
     Active Substance: ASCORBIC ACID
  4. VITAMIN D [Concomitant]
     Active Substance: VITAMIN D NOS
  5. HAIR SKIN + NAILS [Concomitant]
  6. COENZYME Q10 [Concomitant]
     Active Substance: DIETARY SUPPLEMENT\UBIDECARENONE
  7. CALCIUM [Concomitant]
     Active Substance: CALCIUM
  8. VITAMIN B COMPLEX [Concomitant]
     Active Substance: CYANOCOBALAMIN\DEXPANTHENOL\NIACINAMIDE\PYRIDOXINE HYDROCHLORIDE\RIBOFLAVIN 5^-PHOSPHATE SODIUM\THIAMINE HYDROCHLORIDE\VITAMIN B COMPLEX

REACTIONS (10)
  - Arthralgia [None]
  - Oropharyngeal pain [None]
  - Throat irritation [None]
  - Peripheral swelling [None]
  - Bite [None]
  - Pain in extremity [None]
  - Pruritus [None]
  - Neck pain [None]
  - Dysphagia [None]
  - Mobility decreased [None]

NARRATIVE: CASE EVENT DATE: 20200904
